FAERS Safety Report 9380659 (Version 1)
Quarter: 2013Q3

REPORT INFORMATION
  Report Type: Spontaneous
  Country: US (occurrence: US)
  Receive Date: 20130702
  Receipt Date: 20130702
  Transmission Date: 20140515
  Serious: Yes (Hospitalization, Other)
  Sender: FDA-Public Use
  Company Number: US-ELI_LILLY_AND_COMPANY-US201306006817

PATIENT
  Age: 58 Year
  Sex: Female

DRUGS (4)
  1. ALIMTA [Suspect]
     Indication: NON-SMALL CELL LUNG CANCER
     Dosage: 500 MG/M2, UNKNOWN
     Route: 042
     Dates: start: 20130529, end: 20130618
  2. ARANESP [Concomitant]
     Indication: HAEMOGLOBIN DECREASED
     Dosage: UNK
     Dates: start: 20130529
  3. KEPPRA [Concomitant]
     Indication: CONVULSION
     Dosage: UNK
     Dates: start: 20130529
  4. MARINOL                            /00897601/ [Concomitant]
     Indication: NAUSEA
     Dosage: UNK
     Dates: start: 20130529

REACTIONS (5)
  - Cerebral haemorrhage [Unknown]
  - Hypotension [Unknown]
  - Febrile neutropenia [Unknown]
  - Pancytopenia [Unknown]
  - Creatinine renal clearance decreased [Unknown]
